FAERS Safety Report 19033379 (Version 1)
Quarter: 2021Q1

REPORT INFORMATION
  Report Type: Spontaneous
  Country: US (occurrence: US)
  Receive Date: 20210319
  Receipt Date: 20210319
  Transmission Date: 20210420
  Serious: Yes (Other)
  Sender: FDA-Public Use
  Company Number: US-GLAXOSMITHKLINE-US2021GSK065751

PATIENT
  Sex: Male

DRUGS (6)
  1. RANITIDINE. [Suspect]
     Active Substance: RANITIDINE
     Indication: BARRETT^S OESOPHAGUS
     Dosage: 300 MG, QD
     Route: 065
     Dates: start: 201811, end: 201909
  2. RANITIDINE CAPSULE [Suspect]
     Active Substance: RANITIDINE
     Indication: BARRETT^S OESOPHAGUS
     Dosage: 300 MG, QD
     Route: 065
     Dates: start: 201811, end: 201909
  3. ZANTAC [Suspect]
     Active Substance: RANITIDINE HYDROCHLORIDE
     Indication: BARRETT^S OESOPHAGUS
     Dosage: 300 MG, QD
     Route: 065
     Dates: start: 201811, end: 201909
  4. RANITIDINE. [Suspect]
     Active Substance: RANITIDINE
     Indication: BARRETT^S OESOPHAGUS
     Dosage: 300 MG, QD
     Route: 065
     Dates: start: 201811, end: 201909
  5. RANITIDINE. [Suspect]
     Active Substance: RANITIDINE
     Indication: BARRETT^S OESOPHAGUS
     Dosage: 300 MG, QD
     Route: 065
     Dates: start: 201811, end: 201909
  6. ZANTAC [Suspect]
     Active Substance: RANITIDINE HYDROCHLORIDE
     Indication: BARRETT^S OESOPHAGUS
     Dosage: 300 MG, QD
     Route: 065
     Dates: start: 201811, end: 201909

REACTIONS (1)
  - Colorectal cancer [Unknown]
